FAERS Safety Report 8311149-5 (Version None)
Quarter: 2012Q2

REPORT INFORMATION
  Report Type: 
  Country: None (occurrence: None)
  Receive Date: 20120425
  Receipt Date: 20110815
  Transmission Date: 20120825
  Serious: No
  Sender: FDA-Public Use
  Company Number: US-MYLANLABS-2011S1016701

PATIENT
  Age: 49 Year
  Sex: Female

DRUGS (25)
  1. LORAZEPAM [Suspect]
     Dates: start: 20090930, end: 20091120
  2. LORAZEPAM [Suspect]
     Route: 048
     Dates: start: 20110801
  3. SYNTHROID [Concomitant]
  4. LORAZEPAM [Suspect]
     Indication: PSYCHOTIC DISORDER
     Dates: start: 20090826, end: 20090930
  5. LORAZEPAM [Suspect]
     Dates: start: 20091223, end: 20091227
  6. VITAMIN D [Concomitant]
  7. LORAZEPAM [Suspect]
     Route: 048
     Dates: start: 20110801
  8. LORAZEPAM [Suspect]
     Indication: NUCLEAR MAGNETIC RESONANCE IMAGING
     Dates: start: 20090826, end: 20090930
  9. LORAZEPAM [Suspect]
     Dates: start: 20091203, end: 20091223
  10. LORAZEPAM [Suspect]
     Route: 048
     Dates: start: 20110725, end: 20110801
  11. LORAZEPAM [Suspect]
     Dates: start: 20091203, end: 20091223
  12. LORAZEPAM [Suspect]
     Dates: start: 20091203, end: 20091223
  13. LORAZEPAM [Suspect]
     Route: 048
     Dates: start: 20110725, end: 20110801
  14. LORAZEPAM [Suspect]
     Route: 048
     Dates: start: 20110725, end: 20110801
  15. LORAZEPAM [Suspect]
     Indication: ANXIETY
     Dates: start: 20090826, end: 20090930
  16. LORAZEPAM [Suspect]
     Dates: start: 20090930, end: 20091120
  17. HALDOL [Concomitant]
     Route: 030
  18. COLACE [Concomitant]
  19. LORAZEPAM [Suspect]
     Dates: start: 20090930, end: 20091120
  20. LORAZEPAM [Suspect]
     Dates: start: 20091120, end: 20091203
  21. LORAZEPAM [Suspect]
     Dates: start: 20091120, end: 20091203
  22. LORAZEPAM [Suspect]
     Dates: start: 20091120, end: 20091203
  23. LORAZEPAM [Suspect]
     Dates: start: 20091223, end: 20091227
  24. LORAZEPAM [Suspect]
     Dates: start: 20091223, end: 20091227
  25. LORAZEPAM [Suspect]
     Route: 048
     Dates: start: 20110801

REACTIONS (15)
  - PSYCHOTIC DISORDER [None]
  - HEADACHE [None]
  - REPETITIVE SPEECH [None]
  - DRY MOUTH [None]
  - FEAR [None]
  - AGITATION [None]
  - NERVOUSNESS [None]
  - HOSTILITY [None]
  - TREMOR [None]
  - AGGRESSION [None]
  - VISUAL IMPAIRMENT [None]
  - CRYING [None]
  - DYSKINESIA [None]
  - EMOTIONAL DISTRESS [None]
  - INSOMNIA [None]
